FAERS Safety Report 5788319-3 (Version None)
Quarter: 2008Q2

REPORT INFORMATION
  Report Type: 
  Country: None (occurrence: None)
  Receive Date: 20080623
  Receipt Date: 20080609
  Transmission Date: 20081010
  Serious: Yes (Hospitalization)
  Sender: FDA-Public Use
  Company Number: B0525657A

PATIENT
  Age: 86 Year
  Sex: Female

DRUGS (12)
  1. LANOXIN [Suspect]
  2. ASPIRIN [Concomitant]
  3. CARVEDILOL [Concomitant]
  4. FUROSEMIDE [Concomitant]
  5. ATORVASTATIN CALCIUM [Concomitant]
  6. LOSARTAN POTASSIUM [Concomitant]
  7. AMIODARONE HCL [Concomitant]
  8. IRON SALT [Concomitant]
  9. LEVOTHYROXINE SODIUM [Concomitant]
  10. ISOSORBIDE DINITRATE [Concomitant]
  11. HYDROCHLOROTHIAZIDE [Concomitant]
  12. VENLAFAXINE HYDROCHLORIDE [Concomitant]

REACTIONS (14)
  - AGITATION [None]
  - ANOREXIA [None]
  - ATRIOVENTRICULAR BLOCK FIRST DEGREE [None]
  - BLOOD PRESSURE DECREASED [None]
  - BRADYCARDIA [None]
  - BUNDLE BRANCH BLOCK [None]
  - CONFUSIONAL STATE [None]
  - ELECTROCARDIOGRAM QRS COMPLEX SHORTENED [None]
  - HEART SOUNDS ABNORMAL [None]
  - HYPERKALAEMIA [None]
  - MENTAL STATUS CHANGES [None]
  - ORAL INTAKE REDUCED [None]
  - RENAL FAILURE [None]
  - THERAPEUTIC AGENT TOXICITY [None]
